FAERS Safety Report 12174023 (Version 2)
Quarter: 2016Q2

REPORT INFORMATION
  Report Type: Spontaneous
  Country: US (occurrence: US)
  Receive Date: 20160314
  Receipt Date: 20160411
  Transmission Date: 20160815
  Serious: Yes (Other)
  Sender: FDA-Public Use
  Company Number: US-BEH-2016059704

PATIENT
  Sex: Female
  Weight: 29 kg

DRUGS (40)
  1. HYDROCORTISONE. [Concomitant]
     Active Substance: HYDROCORTISONE
  2. ATROPINE. [Concomitant]
     Active Substance: ATROPINE
  3. FOLIC ACID. [Concomitant]
     Active Substance: FOLIC ACID
  4. ZINC [Concomitant]
     Active Substance: ZINC\ZINC CHLORIDE
  5. HIZENTRA [Suspect]
     Active Substance: HUMAN IMMUNOGLOBULIN G
     Indication: IMMUNODEFICIENCY COMMON VARIABLE
     Route: 058
  6. LMX [Concomitant]
     Active Substance: LIDOCAINE
  7. TEGRETOL [Concomitant]
     Active Substance: CARBAMAZEPINE
  8. MUPIROCIN. [Concomitant]
     Active Substance: MUPIROCIN
  9. BENADRYL [Concomitant]
     Active Substance: DIPHENHYDRAMINE HYDROCHLORIDE
  10. NYSTATIN. [Concomitant]
     Active Substance: NYSTATIN
  11. DIPHENHYDRAMINE. [Concomitant]
     Active Substance: DIPHENHYDRAMINE
  12. BACTRIM [Concomitant]
     Active Substance: SULFAMETHOXAZOLE\TRIMETHOPRIM
  13. CLONAZEPAM. [Concomitant]
     Active Substance: CLONAZEPAM
  14. TOBRAMYCIN. [Concomitant]
     Active Substance: TOBRAMYCIN
  15. PULMICORT TURBUHALER [Concomitant]
     Active Substance: BUDESONIDE
  16. XOPENEX [Concomitant]
     Active Substance: LEVALBUTEROL HYDROCHLORIDE
  17. LACRI-LUBE [Concomitant]
  18. CALMOSEPTINE [Concomitant]
     Active Substance: MENTHOL\ZINC OXIDE
  19. EPIPEN [Concomitant]
     Active Substance: EPINEPHRINE
  20. ZOVIRAX [Concomitant]
     Active Substance: ACYCLOVIR
  21. ATROVENT [Concomitant]
     Active Substance: IPRATROPIUM BROMIDE
  22. PREVACID [Concomitant]
     Active Substance: LANSOPRAZOLE
  23. SINGULAIR [Concomitant]
     Active Substance: MONTELUKAST SODIUM
  24. GLYCERIN. [Concomitant]
     Active Substance: GLYCERIN
  25. METHOTREXATE [Concomitant]
     Active Substance: METHOTREXATE
  26. NASONEX [Concomitant]
     Active Substance: MOMETASONE FUROATE
  27. MIRALAX [Concomitant]
     Active Substance: POLYETHYLENE GLYCOL 3350
  28. XOPENEX [Concomitant]
     Active Substance: LEVALBUTEROL HYDROCHLORIDE
  29. REFRESH [Concomitant]
     Active Substance: UNSPECIFIED INGREDIENT
  30. XYZAL [Concomitant]
     Active Substance: LEVOCETIRIZINE DIHYDROCHLORIDE
  31. ACETIC ACID. [Concomitant]
     Active Substance: ACETIC ACID
  32. CIPRODEX [Concomitant]
     Active Substance: CIPROFLOXACIN HYDROCHLORIDE\DEXAMETHASONE
  33. BACLOFEN. [Concomitant]
     Active Substance: BACLOFEN
  34. VALIUM [Concomitant]
     Active Substance: DIAZEPAM
  35. FLUORIDE [Concomitant]
     Active Substance: SODIUM FLUORIDE
  36. BISACODYL. [Concomitant]
     Active Substance: BISACODYL
  37. AUGMENTIN [Concomitant]
     Active Substance: AMOXICILLIN\CLAVULANATE POTASSIUM
  38. OCEAN SALINE NASAL SPRAY [Concomitant]
     Active Substance: SODIUM CHLORIDE
  39. PROBIOTIC [Concomitant]
     Active Substance: PROBIOTICS NOS
  40. ROBINUL [Concomitant]
     Active Substance: GLYCOPYRROLATE

REACTIONS (2)
  - Pneumonia [Recovered/Resolved]
  - Streptococcal infection [Recovered/Resolved]
